FAERS Safety Report 5123875-X (Version None)
Quarter: 2006Q4

REPORT INFORMATION
  Report Type: 
  Country: None (occurrence: None)
  Receive Date: 20061010
  Receipt Date: 20061004
  Transmission Date: 20070319
  Serious: Yes (Hospitalization)
  Sender: FDA-Public Use
  Company Number: IT-GLAXOSMITHKLINE-B0441366A

PATIENT
  Sex: Female

DRUGS (1)
  1. TELZIR [Suspect]
     Route: 065

REACTIONS (3)
  - CHOLESTASIS [None]
  - LIVER DISORDER [None]
  - RASH [None]
